FAERS Safety Report 20082067 (Version 1)
Quarter: 2021Q4

REPORT INFORMATION
  Report Type: Spontaneous
  Country: US (occurrence: None)
  Receive Date: 20211117
  Receipt Date: 20211117
  Transmission Date: 20220304
  Serious: No
  Sender: FDA-Public Use
  Company Number: None

PATIENT
  Sex: Female

DRUGS (8)
  1. AVONEX PEN [Suspect]
     Active Substance: INTERFERON BETA-1A
     Indication: Multiple sclerosis
     Dosage: FREQUENCY : WEEKLY;?
     Route: 030
     Dates: start: 20140114
  2. OMEPRAZOLE [Concomitant]
     Active Substance: OMEPRAZOLE
  3. LYRICA [Concomitant]
  4. HYDROCODONE BITARTRATE [Concomitant]
  5. SERTRALINE HCL [Concomitant]
  6. CELESTONE-SOLUSPAN [Concomitant]
  7. LOSARTAN POTASSIUM [Concomitant]
  8. PROPRANOLOL HCL [Concomitant]

REACTIONS (2)
  - Drug ineffective [None]
  - Surgery [None]
